FAERS Safety Report 15090447 (Version 1)
Quarter: 2018Q2

REPORT INFORMATION
  Report Type: Report from Study
  Country: JP (occurrence: JP)
  Receive Date: 20180629
  Receipt Date: 20180629
  Transmission Date: 20180711
  Serious: Yes (Hospitalization, Other)
  Sender: FDA-Public Use
  Company Number: JP-JNJFOC-20180530608

PATIENT
  Age: 69 Year
  Sex: Male
  Weight: 67.1 kg

DRUGS (10)
  1. LOPERAMIDE HYDROCHLORIDE. [Concomitant]
     Active Substance: LOPERAMIDE HYDROCHLORIDE
     Indication: DIARRHOEA
     Route: 048
  2. CIMETIDINE [Concomitant]
     Active Substance: CIMETIDINE
     Indication: PROPHYLAXIS
     Dosage: PERORAL MEDICINE
     Route: 048
     Dates: start: 20161128, end: 201612
  3. IMBRUVICA [Suspect]
     Active Substance: IBRUTINIB
     Indication: CHRONIC LYMPHOCYTIC LEUKAEMIA REFRACTORY
     Route: 048
     Dates: start: 20161108, end: 20161201
  4. IMBRUVICA [Suspect]
     Active Substance: IBRUTINIB
     Indication: CHRONIC LYMPHOCYTIC LEUKAEMIA REFRACTORY
     Route: 048
     Dates: start: 20170111
  5. CLARITH [Concomitant]
     Active Substance: CLARITHROMYCIN
     Indication: PROPHYLAXIS
     Dosage: PERORAL MEDICINE
     Route: 048
     Dates: start: 20161128, end: 201612
  6. BETAMETHASONE BUTYRATE PROPIONATE [Concomitant]
     Active Substance: BETAMETHASONE BUTYRATE PROPIONATE
     Indication: ECZEMA
     Route: 061
     Dates: end: 20160919
  7. BIO-THREE [Concomitant]
     Active Substance: HERBALS
     Indication: DIARRHOEA
     Route: 048
  8. FEBURIC [Concomitant]
     Active Substance: FEBUXOSTAT
     Indication: PROPHYLAXIS
     Route: 048
     Dates: start: 20160726
  9. IMBRUVICA [Suspect]
     Active Substance: IBRUTINIB
     Indication: CHRONIC LYMPHOCYTIC LEUKAEMIA REFRACTORY
     Route: 048
     Dates: start: 20160727, end: 20160926
  10. ACICLOVIR [Concomitant]
     Active Substance: ACYCLOVIR
     Indication: PROPHYLAXIS
     Route: 048

REACTIONS (13)
  - Heat illness [Recovered/Resolved]
  - Contusion [Recovered/Resolved]
  - Upper respiratory tract inflammation [Recovered/Resolved]
  - Purpura [Not Recovered/Not Resolved]
  - Platelet count decreased [Recovered/Resolved]
  - Paronychia [Recovered/Resolved]
  - Purpura [Recovered/Resolved]
  - Conjunctivitis [Recovered/Resolved]
  - Lymphocyte count increased [Not Recovered/Not Resolved]
  - Sepsis [Recovered/Resolved]
  - Renal impairment [Not Recovered/Not Resolved]
  - Eczema [Recovered/Resolved]
  - Petechiae [Recovered/Resolved]

NARRATIVE: CASE EVENT DATE: 20160802
